FAERS Safety Report 7515819-8 (Version None)
Quarter: 2011Q2

REPORT INFORMATION
  Report Type: 
  Country: None (occurrence: None)
  Receive Date: 20110601
  Receipt Date: 20110523
  Transmission Date: 20111010
  Serious: Yes (Hospitalization, Other)
  Sender: FDA-Public Use
  Company Number: SE-ASTRAZENECA-2009SE06183

PATIENT
  Age: 32 Year
  Sex: Male

DRUGS (1)
  1. SEROQUEL [Suspect]
     Dosage: 20 TABLETS (8G) TAKEN DURING A COUPLE OF HOURS
     Route: 048

REACTIONS (2)
  - OVERDOSE [None]
  - TACHYCARDIA [None]
